FAERS Safety Report 10487957 (Version 1)
Quarter: 2014Q4

REPORT INFORMATION
  Report Type: Spontaneous
  Country: US (occurrence: US)
  Receive Date: 20141001
  Receipt Date: 20141001
  Transmission Date: 20150528
  Serious: No
  Sender: FDA-Public Use
  Company Number: US-TEVA-513007USA

PATIENT
  Age: 36 Year
  Sex: Female
  Weight: 49.94 kg

DRUGS (1)
  1. PLAN B ONE-STEP [Suspect]
     Active Substance: LEVONORGESTREL
     Indication: POST COITAL CONTRACEPTION
     Dosage: 1.5 MILLIGRAM DAILY;
     Route: 048
     Dates: start: 20140915, end: 20140915

REACTIONS (3)
  - Breast swelling [Not Recovered/Not Resolved]
  - Menstruation irregular [Not Recovered/Not Resolved]
  - Breast pain [Not Recovered/Not Resolved]

NARRATIVE: CASE EVENT DATE: 20140916
